FAERS Safety Report 5736398-1 (Version None)
Quarter: 2008Q2

REPORT INFORMATION
  Report Type: 
  Country: None (occurrence: None)
  Receive Date: 20080513
  Receipt Date: 20080501
  Transmission Date: 20081010
  Serious: Yes (Hospitalization, Congenital Anomaly)
  Sender: FDA-Public Use
  Company Number: A0702255A

PATIENT
  Sex: Female
  Weight: 0.8 kg

DRUGS (2)
  1. PAXIL CR [Suspect]
     Indication: ANXIETY
     Dates: start: 20030701, end: 20031201
  2. VITAMIN TAB [Concomitant]
     Indication: PREGNANCY

REACTIONS (13)
  - ADJUSTMENT DISORDER [None]
  - BRONCHOPULMONARY DYSPLASIA [None]
  - DEVELOPMENTAL DELAY [None]
  - DRUG EXPOSURE DURING PREGNANCY [None]
  - DYSMORPHISM [None]
  - EATING DISORDER [None]
  - HYDROCEPHALUS [None]
  - HYPOACUSIS [None]
  - PATENT DUCTUS ARTERIOSUS [None]
  - PERSISTENT FOETAL CIRCULATION [None]
  - PREMATURE BABY [None]
  - RETINOPATHY OF PREMATURITY [None]
  - TRISOMY 21 [None]
